FAERS Safety Report 14677475 (Version 1)
Quarter: 2018Q1

REPORT INFORMATION
  Report Type: Spontaneous
  Country: FR (occurrence: FR)
  Receive Date: 20180325
  Receipt Date: 20180325
  Transmission Date: 20180509
  Serious: Yes (Other)
  Sender: FDA-Public Use
  Company Number: FR-ROCHE-2090956

PATIENT
  Age: 4 Year
  Sex: Female

DRUGS (1)
  1. TAMIFLU [Suspect]
     Active Substance: OSELTAMIVIR PHOSPHATE
     Indication: INFLUENZA LIKE ILLNESS
     Dosage: POWDER FOR ORAL SUSPENSION 6 MG/ML
     Route: 048
     Dates: start: 20180119, end: 20180120

REACTIONS (4)
  - Hallucination [Recovered/Resolved]
  - Somnambulism [Recovered/Resolved]
  - Sleep disorder [Recovered/Resolved]
  - Affective disorder [Recovered/Resolved]

NARRATIVE: CASE EVENT DATE: 20180119
